FAERS Safety Report 13954356 (Version 3)
Quarter: 2017Q4

REPORT INFORMATION
  Report Type: Spontaneous
  Country: DE (occurrence: DE)
  Receive Date: 20170911
  Receipt Date: 20171026
  Transmission Date: 20180320
  Serious: Yes (Other)
  Sender: FDA-Public Use
  Company Number: PHHY2017DE132631

PATIENT
  Sex: Male

DRUGS (2)
  1. SYSTANE HYDRATION (ALC) [Suspect]
     Active Substance: HYALURONATE SODIUM\POLYETHYLENE GLYCOLS\PROPYLENE GLYCOL
     Indication: PRODUCT USED FOR UNKNOWN INDICATION
     Dosage: UNK
     Route: 047
     Dates: start: 2017
  2. SYSTANE ULTRA [Suspect]
     Active Substance: POLYETHYLENE GLYCOL 400\PROPYLENE GLYCOL
     Indication: PRODUCT USED FOR UNKNOWN INDICATION
     Dosage: UNK
     Route: 047
     Dates: start: 2017

REACTIONS (2)
  - Hypertensive crisis [Unknown]
  - Eye irritation [Unknown]

NARRATIVE: CASE EVENT DATE: 2017
